FAERS Safety Report 8913358 (Version 1)
Quarter: 2012Q4

REPORT INFORMATION
  Report Type: 
  Country: SE (occurrence: SE)
  Receive Date: 20121116
  Receipt Date: 20121116
  Transmission Date: 20130627
  Serious: Yes (Hospitalization)
  Sender: FDA-Public Use
  Company Number: SE-PFIZER INC-2012283138

PATIENT
  Age: 71 Year
  Sex: Female
  Weight: 59.7 kg

DRUGS (12)
  1. GENOTROPIN [Suspect]
     Indication: GROWTH HORMONE DEFICIENCY
     Dosage: 0.27 mg, 1x/day,7 injections/week
     Route: 058
     Dates: start: 19990420
  2. LEVOTHYROXINE [Concomitant]
     Indication: TSH DECREASED
     Dosage: UNK
     Dates: start: 19690101
  3. LEVOTHYROXINE [Concomitant]
     Indication: PRIMARY HYPOTHYROIDISM
  4. CORTISONE ACETATE [Concomitant]
     Indication: ACTH DECREASED
     Dosage: UNK
     Dates: start: 19690101
  5. PANCREON [Concomitant]
     Indication: PANCREATIC INSUFFICIENCY
     Dosage: UNK
     Dates: start: 19920124
  6. PREPULSID [Concomitant]
     Indication: GASTRIC FUNCTION DISORDER
     Dosage: UNK
     Dates: start: 19980727
  7. INSULIN [Concomitant]
     Indication: DIABETES MELLITUS
     Dosage: UNK
     Dates: start: 20000114
  8. ACETYLSALICYLIC ACID [Concomitant]
     Indication: HEART DISORDER
     Dosage: UNK
     Dates: start: 20010419
  9. ACETYLSALICYLIC ACID [Concomitant]
     Indication: STROKE
  10. ZOCORD [Concomitant]
     Indication: HYPERLIPIDAEMIA
     Dosage: UNK
     Dates: start: 20000114
  11. INSULIN ACTRAPID HUMAN [Concomitant]
     Indication: DIABETES MELLITUS
     Dosage: UNK
     Dates: start: 19490601
  12. INSULIN INSULATARD [Concomitant]
     Indication: DIABETES MELLITUS
     Dosage: UNK
     Dates: start: 19490601

REACTIONS (2)
  - Cor pulmonale [Unknown]
  - Pneumonia [Unknown]
